FAERS Safety Report 5213587-6 (Version None)
Quarter: 2007Q1

REPORT INFORMATION
  Report Type: 
  Country: None (occurrence: None)
  Receive Date: 20070119
  Receipt Date: 20070110
  Transmission Date: 20070707
  Serious: Yes (Hospitalization, Other)
  Sender: FDA-Public Use
  Company Number: FR-BRISTOL-MYERS SQUIBB COMPANY-13642269

PATIENT
  Age: 33 Year
  Sex: Male
  Weight: 80 kg

DRUGS (9)
  1. SUSTIVA [Suspect]
     Route: 048
     Dates: start: 20051009, end: 20060209
  2. CIPROFLOXACIN [Suspect]
     Indication: COUGH
     Route: 042
     Dates: start: 20060204, end: 20060208
  3. CIPROFLOXACIN [Suspect]
     Indication: PYREXIA
     Route: 042
     Dates: start: 20060204, end: 20060208
  4. RIFINAH [Suspect]
     Route: 048
     Dates: start: 20051009, end: 20060209
  5. ROCEPHIN [Suspect]
     Indication: PYREXIA
     Route: 042
     Dates: start: 20060204, end: 20060208
  6. ROCEPHIN [Suspect]
     Indication: COUGH
     Route: 042
     Dates: start: 20060204, end: 20060208
  7. FRAXODI [Concomitant]
     Route: 048
     Dates: start: 20051009, end: 20060209
  8. TRANXENE [Concomitant]
     Route: 048
     Dates: start: 20051009, end: 20060209
  9. TRUVADA [Concomitant]
     Route: 048
     Dates: start: 20051009, end: 20060209

REACTIONS (12)
  - ALANINE AMINOTRANSFERASE INCREASED [None]
  - ANAEMIA [None]
  - ASPARTATE AMINOTRANSFERASE INCREASED [None]
  - CHOLESTASIS [None]
  - COUGH [None]
  - CSF PROTEIN INCREASED [None]
  - HAEMOLYSIS [None]
  - HEMIPLEGIA [None]
  - HYDROCEPHALUS [None]
  - HYPERBILIRUBINAEMIA [None]
  - JAUNDICE [None]
  - PYREXIA [None]
